FAERS Safety Report 20809737 (Version 1)
Quarter: 2022Q2

REPORT INFORMATION
  Report Type: Report from Study
  Country: US (occurrence: US)
  Receive Date: 20220510
  Receipt Date: 20220510
  Transmission Date: 20220721
  Serious: Yes (Hospitalization)
  Sender: FDA-Public Use
  Company Number: US-Accord-262870

PATIENT
  Sex: Male
  Weight: 60.10 kg

DRUGS (1)
  1. CLOZAPINE [Suspect]
     Active Substance: CLOZAPINE
     Indication: Schizophrenia
     Dosage: 100MG IN MORNING, 200MG AT HS
     Route: 048

REACTIONS (2)
  - Fall [Unknown]
  - Asthenia [Unknown]
